FAERS Safety Report 11950526 (Version 19)
Quarter: 2018Q2

REPORT INFORMATION
  Report Type: Spontaneous
  Country: US (occurrence: US)
  Receive Date: 20160126
  Receipt Date: 20180508
  Transmission Date: 20180711
  Serious: Yes (Hospitalization, Other)
  Sender: FDA-Public Use
  Company Number: US-PFIZER INC-2016012062

PATIENT
  Age: 65 Year
  Sex: Female
  Weight: 84.35 kg

DRUGS (10)
  1. SUTENT [Suspect]
     Active Substance: SUNITINIB MALATE
     Dosage: 37.5 MG, CYCLIC (DAYS 1 TO 14 EVERY 21 DAYS)
     Route: 048
     Dates: start: 20150321
  2. SUTENT [Suspect]
     Active Substance: SUNITINIB MALATE
     Dosage: 37.5 MG, CYCLIC (DAYS 1 TO 14 EVERY 21 DAYS)
     Route: 048
     Dates: end: 20160608
  3. SUTENT [Suspect]
     Active Substance: SUNITINIB MALATE
     Indication: GASTROINTESTINAL STROMAL TUMOUR
     Dosage: 37.5 MG, CYCLIC (DAILY FOR 28 DAYS ON AND 14 DAYS OFF)
     Route: 048
     Dates: start: 20150316, end: 201503
  4. SUTENT [Suspect]
     Active Substance: SUNITINIB MALATE
     Dosage: 37.5 MG, CYCLIC (DAYS 1 TO 14 EVERY 21 DAYS; 1 CAPSULE FOR TWO WEEKS ON AND 1 WEEK OFF)
     Route: 048
     Dates: start: 20161216
  5. SUTENT [Suspect]
     Active Substance: SUNITINIB MALATE
     Dosage: 37.5 MG, CYCLIC, (DAILY FROM DAY 1 TO 7, THEN OFF 7 DAYS; EVERY OTHER WEEK OR FOR 14 DAYS)
     Route: 048
     Dates: start: 2017, end: 2017
  6. SUTENT [Suspect]
     Active Substance: SUNITINIB MALATE
     Dosage: 37.5 MG, CYCLIC (ONE CAP 7 DAYS ON, 7 DAYS OFF EVERY OTHER WEEK)
     Route: 048
     Dates: start: 20150321
  7. CRESTOR [Suspect]
     Active Substance: ROSUVASTATIN CALCIUM
     Indication: BLOOD CHOLESTEROL ABNORMAL
     Dosage: UNK
  8. SUTENT [Suspect]
     Active Substance: SUNITINIB MALATE
     Dosage: 37.5 MG, CYCLIC, (DAILY FROM DAY 1 TO 7, THEN OFF 7 DAYS; EVERY OTHER WEEK OR FOR 14 DAYS)
     Route: 048
     Dates: start: 20171205
  9. SUTENT [Suspect]
     Active Substance: SUNITINIB MALATE
     Dosage: 37.5 MG, CYCLIC (DAYS 1 TO 14 EVERY 21 DAYS)
     Route: 048
  10. SUTENT [Suspect]
     Active Substance: SUNITINIB MALATE
     Dosage: 37.5 MG, CYCLIC (DAYS 1 TO 14 EVERY 21 DAYS; 1 CAPSULE FOR TWO WEEKS ON AND 1 WEEK OFF)
     Route: 048
     Dates: start: 2016, end: 20161201

REACTIONS (18)
  - Gastrooesophageal reflux disease [Unknown]
  - Dysstasia [Unknown]
  - Pain in extremity [Recovered/Resolved]
  - Headache [Unknown]
  - Arthritis [Unknown]
  - Diarrhoea [Recovered/Resolved]
  - Skin disorder [Recovered/Resolved]
  - Joint stiffness [Unknown]
  - Myalgia [Unknown]
  - Thrombocytopenia [Unknown]
  - Hyperkeratosis [Recovered/Resolved]
  - Gait disturbance [Unknown]
  - Musculoskeletal stiffness [Unknown]
  - Pain [Unknown]
  - Arthralgia [Unknown]
  - Cholelithiasis [Recovered/Resolved]
  - Oral pain [Recovered/Resolved]
  - Decreased appetite [Unknown]

NARRATIVE: CASE EVENT DATE: 20160608
